FAERS Safety Report 6891441-1 (Version None)
Quarter: 2010Q3

REPORT INFORMATION
  Report Type: 
  Country: None (occurrence: None)
  Receive Date: 20100731
  Receipt Date: 20070709
  Transmission Date: 20110219
  Serious: No
  Sender: FDA-Public Use
  Company Number: US-PFIZER INC-2007055842

PATIENT
  Sex: Female

DRUGS (2)
  1. NORVASC [Suspect]
     Indication: HYPERTENSION
     Route: 048
     Dates: start: 20070629
  2. ACETYLSALICYLIC ACID SRT [Concomitant]
     Dates: start: 20070501

REACTIONS (1)
  - OEDEMA PERIPHERAL [None]
